FAERS Safety Report 8388483-6 (Version None)
Quarter: 2012Q2

REPORT INFORMATION
  Report Type: 
  Country: None (occurrence: None)
  Receive Date: 20120525
  Receipt Date: 20120524
  Transmission Date: 20120825
  Serious: Yes (Other)
  Sender: FDA-Public Use
  Company Number: US-ROCHE-1026282

PATIENT
  Sex: Male

DRUGS (1)
  1. ZELBORAF [Suspect]
     Indication: PRODUCT USED FOR UNKNOWN INDICATION

REACTIONS (11)
  - ERYTHEMA [None]
  - SUNBURN [None]
  - ARTHRALGIA [None]
  - CONSTIPATION [None]
  - ASTHENOPIA [None]
  - RASH [None]
  - SKIN MASS [None]
  - VOMITING [None]
  - ALOPECIA [None]
  - MYALGIA [None]
  - FATIGUE [None]
